FAERS Safety Report 18035119 (Version 1)
Quarter: 2020Q3

REPORT INFORMATION
  Report Type: Spontaneous
  Country: GB (occurrence: GB)
  Receive Date: 20200717
  Receipt Date: 20200717
  Transmission Date: 20201103
  Serious: Yes (Other)
  Sender: FDA-Public Use
  Company Number: GB-TEVA-2020-GB-1800851

PATIENT
  Age: 34 Year
  Sex: Female
  Weight: 74 kg

DRUGS (2)
  1. LAMOTRIGINE. [Concomitant]
     Active Substance: LAMOTRIGINE
     Route: 065
  2. GABAPENTIN. [Suspect]
     Active Substance: GABAPENTIN
     Indication: PAIN IN EXTREMITY
     Dosage: 1500 MG
     Route: 002
     Dates: start: 20190920

REACTIONS (2)
  - Sleep paralysis [Not Recovered/Not Resolved]
  - Apnoea [Unknown]

NARRATIVE: CASE EVENT DATE: 20200613
